FAERS Safety Report 6069504-2 (Version None)
Quarter: 2009Q1

REPORT INFORMATION
  Report Type: 
  Country: None (occurrence: None)
  Receive Date: 20090206
  Receipt Date: 20090203
  Transmission Date: 20090719
  Serious: Yes (Hospitalization)
  Sender: FDA-Public Use
  Company Number: US-B.I. PHARMACEUTICALS,INC./RIDGEFIELD-2008-BP-13604BP

PATIENT
  Sex: Female

DRUGS (1)
  1. SPIRIVA [Suspect]
     Indication: BRONCHIECTASIS
     Dosage: 18MCG
     Route: 055
     Dates: start: 20070101

REACTIONS (5)
  - BRONCHIECTASIS [None]
  - CARDIAC DISORDER [None]
  - CATARACT [None]
  - COMPRESSION FRACTURE [None]
  - DYSPNOEA [None]
